FAERS Safety Report 7906288-4 (Version None)
Quarter: 2011Q4

REPORT INFORMATION
  Report Type: 
  Country: None (occurrence: None)
  Receive Date: 20111110
  Receipt Date: 20111101
  Transmission Date: 20120403
  Serious: Yes (Hospitalization)
  Sender: FDA-Public Use
  Company Number: US-BAYER-2011-107623

PATIENT
  Age: 19 Year
  Sex: Female
  Weight: 67.12 kg

DRUGS (3)
  1. CONCERTA [Concomitant]
     Indication: ATTENTION DEFICIT/HYPERACTIVITY DISORDER
     Dosage: 20 MG, DAILY
  2. YAZ [Suspect]
     Indication: ACNE
  3. YAZ [Suspect]
     Indication: CONTRACEPTION
     Dosage: UNK
     Dates: start: 20071201, end: 20090501

REACTIONS (8)
  - PAIN [None]
  - CHOLECYSTITIS CHRONIC [None]
  - BILIARY DYSKINESIA [None]
  - CHOLECYSTITIS INFECTIVE [None]
  - EATING DISORDER [None]
  - DISCOMFORT [None]
  - DYSPEPSIA [None]
  - GALLBLADDER CHOLESTEROLOSIS [None]
